FAERS Safety Report 5442428-7 (Version None)
Quarter: 2007Q3

REPORT INFORMATION
  Report Type: 
  Country: None (occurrence: None)
  Receive Date: 20070830
  Receipt Date: 20070820
  Transmission Date: 20080115
  Serious: Yes (Hospitalization, Other)
  Sender: FDA-Public Use
  Company Number: TPA2007A01776

PATIENT
  Age: 62 Year
  Sex: Female
  Weight: 90.2658 kg

DRUGS (8)
  1. ACTOS [Suspect]
     Indication: TYPE 2 DIABETES MELLITUS
     Dosage: 30 MG, 1 IN 1 D, PER ORAL
     Route: 048
  2. GLUCOTROL XL [Concomitant]
  3. PREVACID [Concomitant]
  4. NEURONTIN [Concomitant]
  5. LIPITOR [Concomitant]
  6. FUROSEMIDE [Concomitant]
  7. ACETAMINOPHEN (PARACETAMOL) (TABLETS) [Concomitant]
  8. DOCUSATE SODIUM (DOCUSATE SODIUM) (CAPSULES) [Concomitant]

REACTIONS (12)
  - ABDOMINAL PAIN UPPER [None]
  - BLOOD PRESSURE INCREASED [None]
  - DIABETIC RETINOPATHY [None]
  - FALL [None]
  - JOINT SWELLING [None]
  - LOWER EXTREMITY MASS [None]
  - MUSCLE TIGHTNESS [None]
  - MYELITIS TRANSVERSE [None]
  - NEUROPATHY PERIPHERAL [None]
  - OEDEMA PERIPHERAL [None]
  - WEIGHT DECREASED [None]
  - WEIGHT INCREASED [None]
